FAERS Safety Report 6248723-6 (Version None)
Quarter: 2009Q2

REPORT INFORMATION
  Report Type: 
  Country: None (occurrence: None)
  Receive Date: 20090629
  Receipt Date: 20090619
  Transmission Date: 20091009
  Serious: Yes (Hospitalization)
  Sender: FDA-Public Use
  Company Number: JP-ASTRAZENECA-2009SE03406

PATIENT
  Age: 82 Year
  Sex: Female

DRUGS (5)
  1. BLOPRESS [Suspect]
     Route: 048
  2. AMLODIPINE [Suspect]
     Route: 048
  3. MEVALOTIN [Suspect]
     Route: 048
  4. ALTAT [Suspect]
     Route: 065
  5. LASIX [Suspect]
     Route: 065

REACTIONS (1)
  - PNEUMONITIS [None]
